FAERS Safety Report 4987028-8 (Version None)
Quarter: 2006Q2

REPORT INFORMATION
  Report Type: 
  Country: None (occurrence: None)
  Receive Date: 20060501
  Receipt Date: 20060406
  Transmission Date: 20061013
  Serious: Yes (Death)
  Sender: FDA-Public Use
  Company Number: IE-AVENTIS-200612092EU

PATIENT
  Sex: Male

DRUGS (9)
  1. ENOXAPARIN SODIUM [Suspect]
     Indication: PROPHYLAXIS
     Route: 058
  2. COVERSYL [Concomitant]
     Route: 048
  3. SOTAGER (SOTALOL) [Concomitant]
     Dates: start: 20050401
  4. LIPITOR [Concomitant]
  5. CAPRIN [Concomitant]
     Dates: end: 20050701
  6. ALLOPURINOL [Concomitant]
  7. ANXICALM [Concomitant]
     Route: 048
  8. DILZEM [Concomitant]
  9. LANOXIN [Concomitant]

REACTIONS (1)
  - POSTOPERATIVE THROMBOSIS [None]
